FAERS Safety Report 12276740 (Version 4)
Quarter: 2016Q3

REPORT INFORMATION
  Report Type: Spontaneous
  Country: US (occurrence: US)
  Receive Date: 20160418
  Receipt Date: 20160708
  Transmission Date: 20161109
  Serious: Yes (Other)
  Sender: FDA-Public Use
  Company Number: US-PFIZER INC-2016188625

PATIENT
  Age: 7 Year
  Sex: Male

DRUGS (1)
  1. GABAPENTIN. [Suspect]
     Active Substance: GABAPENTIN
     Indication: NEURALGIA
     Dosage: 250MG/5ML, 2CC LIQUID ONCE
     Route: 048
     Dates: start: 20160329, end: 20160329

REACTIONS (4)
  - Product use issue [Unknown]
  - Selective mutism [Unknown]
  - Encephalitis autoimmune [Unknown]
  - Psychotic disorder [Not Recovered/Not Resolved]

NARRATIVE: CASE EVENT DATE: 20160329
